FAERS Safety Report 21026357 (Version 2)
Quarter: 2022Q3

REPORT INFORMATION
  Report Type: Spontaneous
  Country: US (occurrence: US)
  Receive Date: 20220630
  Receipt Date: 20220818
  Transmission Date: 20221027
  Serious: Yes (Hospitalization)
  Sender: FDA-Public Use
  Company Number: US-Vifor (International) Inc.-VIT-2022-04516

PATIENT
  Age: 87 Year
  Sex: Male

DRUGS (10)
  1. VELTASSA [Suspect]
     Active Substance: PATIROMER
     Indication: Hyperkalaemia
     Route: 048
     Dates: start: 20220511, end: 2022
  2. VELTASSA [Suspect]
     Active Substance: PATIROMER
     Route: 048
     Dates: start: 2022, end: 2022
  3. VELTASSA [Suspect]
     Active Substance: PATIROMER
     Route: 048
     Dates: start: 2022, end: 20220615
  4. SPIRONOLACTONE [Concomitant]
     Active Substance: SPIRONOLACTONE
     Dates: start: 2022
  5. FUROSEMIDE [Concomitant]
     Active Substance: FUROSEMIDE
  6. HYDRALAZINE [Concomitant]
     Active Substance: HYDRALAZINE HYDROCHLORIDE
  7. ERYTHROPOIETIN [Concomitant]
     Active Substance: ERYTHROPOIETIN
  8. TRAZODONE [Concomitant]
     Active Substance: TRAZODONE HYDROCHLORIDE
  9. SENNA LEAF [Concomitant]
     Active Substance: SENNA LEAF
  10. VITAMINS [Concomitant]
     Active Substance: VITAMINS

REACTIONS (2)
  - Blood potassium increased [Unknown]
  - Diarrhoea [Recovered/Resolved]

NARRATIVE: CASE EVENT DATE: 20220101
